FAERS Safety Report 14116061 (Version 1)
Quarter: 2017Q4

REPORT INFORMATION
  Report Type: Spontaneous
  Country: None (occurrence: RU)
  Receive Date: 20171023
  Receipt Date: 20171023
  Transmission Date: 20180321
  Serious: Yes (Hospitalization)
  Sender: FDA-Public Use
  Company Number: RU-MEDAC PHARMA, INC.-2031172

PATIENT
  Age: 5 Year
  Sex: Female
  Weight: 16 kg

DRUGS (6)
  1. METHOTREXATE-EBEWE [Concomitant]
     Route: 058
     Dates: start: 20170616
  2. MALTOFER [Concomitant]
     Active Substance: IRON POLYMALTOSE
     Route: 048
     Dates: start: 20170605
  3. METOJECT [Suspect]
     Active Substance: METHOTREXATE SODIUM
     Route: 058
     Dates: start: 20170616
  4. ZYRTEC [Concomitant]
     Active Substance: CETIRIZINE HYDROCHLORIDE
     Route: 048
     Dates: start: 20170605
  5. HUMIRA [Concomitant]
     Active Substance: ADALIMUMAB
     Route: 058
     Dates: start: 20170614
  6. FOLIC ACID. [Concomitant]
     Active Substance: FOLIC ACID
     Route: 048
     Dates: start: 20170605

REACTIONS (1)
  - Joint swelling [Recovered/Resolved]

NARRATIVE: CASE EVENT DATE: 20170916
